FAERS Safety Report 7476080-6 (Version None)
Quarter: 2011Q2

REPORT INFORMATION
  Report Type: 
  Country: None (occurrence: None)
  Receive Date: 20110512
  Receipt Date: 20110503
  Transmission Date: 20111010
  Serious: Yes (Hospitalization, Disabling, Other)
  Sender: FDA-Public Use
  Company Number: US-ASTRAZENECA-2011SE19694

PATIENT
  Age: 53 Year
  Sex: Male
  Weight: 108.9 kg

DRUGS (2)
  1. TOPROL-XL [Suspect]
     Indication: HYPERTENSION
     Route: 048
     Dates: start: 20070904, end: 20070917
  2. TOPROL-XL [Suspect]
     Route: 048
     Dates: start: 20070917

REACTIONS (3)
  - CEREBROVASCULAR ACCIDENT [None]
  - TREATMENT NONCOMPLIANCE [None]
  - MEMORY IMPAIRMENT [None]
